FAERS Safety Report 4911700-9 (Version None)
Quarter: 2006Q1

REPORT INFORMATION
  Report Type: 
  Country: None (occurrence: None)
  Receive Date: 20060213
  Receipt Date: 20060202
  Transmission Date: 20060701
  Serious: Yes (Other)
  Sender: FDA-Public Use
  Company Number: 2006018128

PATIENT
  Sex: Female

DRUGS (4)
  1. PROVERA [Suspect]
     Indication: HORMONE REPLACEMENT THERAPY
     Dosage: ORAL
     Route: 048
     Dates: start: 19940101, end: 20030101
  2. PREMARIN [Suspect]
     Indication: HORMONE REPLACEMENT THERAPY
     Dates: start: 19940101, end: 20030101
  3. CYCRIN [Suspect]
     Indication: HORMONE REPLACEMENT THERAPY
     Dates: start: 19940101, end: 20030101
  4. MEDROXYPROGESTERONE [Suspect]
     Indication: HORMONE REPLACEMENT THERAPY
     Dates: start: 19940101, end: 20030101

REACTIONS (1)
  - BREAST CANCER FEMALE [None]
